FAERS Safety Report 9178181 (Version 1)
Quarter: 2012Q4

REPORT INFORMATION
  Report Type: 
  Country: US (occurrence: US)
  Receive Date: 20121024
  Receipt Date: 20121024
  Transmission Date: 20130627
  Serious: Yes (Other)
  Sender: FDA-Public Use
  Company Number: US-RB-045964-12

PATIENT
  Age: 24 Year
  Sex: Male

DRUGS (1)
  1. SUBOXONE FILM [Suspect]
     Indication: DRUG DEPENDENCE
     Dosage: Suboxone film; various tapered dose to 4 mg/day
     Route: 065
     Dates: start: 2011, end: 20121011

REACTIONS (4)
  - Wrong technique in drug usage process [Recovered/Resolved]
  - Underdose [Recovered/Resolved]
  - Ankle fracture [Not Recovered/Not Resolved]
  - Arthralgia [Not Recovered/Not Resolved]
